FAERS Safety Report 20026736 (Version 2)
Quarter: 2021Q4

REPORT INFORMATION
  Report Type: Report from Study
  Country: US (occurrence: US)
  Receive Date: 20211102
  Receipt Date: 20211212
  Transmission Date: 20220304
  Serious: Yes (Other)
  Sender: FDA-Public Use
  Company Number: US-ABBVIE-21K-163-3808251-00

PATIENT
  Sex: Female

DRUGS (2)
  1. IMBRUVICA [Suspect]
     Active Substance: IBRUTINIB
     Indication: Chronic lymphocytic leukaemia
     Dosage: TAKES IN EVENING WITH FOOD
     Route: 048
     Dates: start: 20210120
  2. IMBRUVICA [Suspect]
     Active Substance: IBRUTINIB
     Route: 048

REACTIONS (6)
  - Cataract [Unknown]
  - Abdominal distension [Unknown]
  - Glossodynia [Unknown]
  - Oral pain [Unknown]
  - Vision blurred [Unknown]
  - Nausea [Unknown]

NARRATIVE: CASE EVENT DATE: 20210101
